FAERS Safety Report 16372884 (Version 2)
Quarter: 2019Q2

REPORT INFORMATION
  Report Type: Spontaneous
  Country: PT (occurrence: PT)
  Receive Date: 20190530
  Receipt Date: 20190531
  Transmission Date: 20190711
  Serious: Yes (Death, Other)
  Sender: FDA-Public Use
  Company Number: PT-GILEAD-2019-0410850

PATIENT
  Age: 73 Year
  Sex: Female

DRUGS (5)
  1. ZYDELIG [Suspect]
     Active Substance: IDELALISIB
     Indication: B-CELL LYMPHOMA
     Dosage: 150 MG, BID
     Route: 065
     Dates: start: 201902, end: 20190524
  2. IMUNOGLOBULIN [IMMUNOGLOBULIN HUMAN NORMAL] [Concomitant]
  3. ACICLOVIR [Concomitant]
     Active Substance: ACYCLOVIR
  4. BACTRIM [Concomitant]
     Active Substance: SULFAMETHOXAZOLE\TRIMETHOPRIM
  5. FLUCONAZOL [Concomitant]
     Active Substance: FLUCONAZOLE

REACTIONS (5)
  - Type 2 diabetes mellitus [Fatal]
  - Sepsis [Fatal]
  - Respiratory disorder [Fatal]
  - Hypertension [Fatal]
  - Hypergammaglobulinaemia [Fatal]
